FAERS Safety Report 5328548-6 (Version None)
Quarter: 2007Q2

REPORT INFORMATION
  Report Type: 
  Country: None (occurrence: None)
  Receive Date: 20070518
  Receipt Date: 20070511
  Transmission Date: 20071010
  Serious: Yes (Death)
  Sender: FDA-Public Use
  Company Number: US-PURDUE-USA_2007_0027339

PATIENT
  Age: 24 Year
  Sex: Male

DRUGS (1)
  1. OXYCONTIN [Suspect]
     Indication: DRUG ABUSER

REACTIONS (1)
  - DEATH [None]
